FAERS Safety Report 5904113-4 (Version None)
Quarter: 2008Q3

REPORT INFORMATION
  Report Type: 
  Country: None (occurrence: None)
  Receive Date: 20080919
  Receipt Date: 20080702
  Transmission Date: 20090109
  Serious: Yes (Other)
  Sender: FDA-Public Use
  Company Number: US-WYE-H04911808

PATIENT
  Age: 64 Year
  Sex: Female
  Weight: 57.66 kg

DRUGS (4)
  1. PRISTIQ [Suspect]
     Indication: DEPRESSION
     Dosage: 50 MG (FREQUENCY UNKNOWN), ORAL
     Route: 048
     Dates: start: 20080702, end: 20080702
  2. WELLBUTRIN [Concomitant]
  3. LISINOPRIL [Concomitant]
  4. PREMARIN [Concomitant]

REACTIONS (3)
  - ABDOMINAL PAIN [None]
  - DIARRHOEA [None]
  - VOMITING [None]
